FAERS Safety Report 8107337-3 (Version None)
Quarter: 2011Q4

REPORT INFORMATION
  Report Type: 
  Country: None (occurrence: None)
  Receive Date: 20111227
  Receipt Date: 20111121
  Transmission Date: 20120403
  Serious: No
  Sender: FDA-Public Use
  Company Number: PHEH2011US010095

PATIENT
  Age: 57 Year
  Sex: Female

DRUGS (5)
  1. PAXIL [Concomitant]
  2. METFORMIN HCL [Concomitant]
  3. GILENYA [Suspect]
     Dosage: 0.5 MG, DAILY IN THE MORNING, ORAL
     Route: 048
     Dates: start: 20111116
  4. BACKLIFIN [Concomitant]
  5. INSULIN [Concomitant]

REACTIONS (3)
  - ABDOMINAL DISCOMFORT [None]
  - DIZZINESS [None]
  - TREMOR [None]
